FAERS Safety Report 17742148 (Version 4)
Quarter: 2020Q2

REPORT INFORMATION
  Report Type: Spontaneous
  Country: JP (occurrence: JP)
  Receive Date: 20200504
  Receipt Date: 20200611
  Transmission Date: 20200714
  Serious: Yes (Death, Life-Threatening, Hospitalization, Other)
  Sender: FDA-Public Use
  Company Number: JP-ACCORD-180796

PATIENT
  Age: 40 Year
  Sex: Female
  Weight: 52.4 kg

DRUGS (2)
  1. PREDNISOLONE. [Suspect]
     Active Substance: PREDNISOLONE
     Indication: IMMUNOSUPPRESSANT DRUG THERAPY
     Dosage: MORE THAN 7 YEARS
     Route: 048
     Dates: start: 201111
  2. TACROLIMUS. [Suspect]
     Active Substance: TACROLIMUS
     Indication: IMMUNOSUPPRESSANT DRUG THERAPY
     Dosage: MORE THAN 7 YEARS
     Route: 048
     Dates: start: 201111, end: 201702

REACTIONS (5)
  - Pneumonia aspiration [Fatal]
  - Encephalomyelitis [Fatal]
  - Brown-Sequard syndrome [Fatal]
  - Varicella zoster virus infection [Fatal]
  - Myelopathy [Fatal]

NARRATIVE: CASE EVENT DATE: 201702
